FAERS Safety Report 10700855 (Version 1)
Quarter: 2014Q4

REPORT INFORMATION
  Report Type: Spontaneous
  Country: US (occurrence: None)
  Receive Date: 20141224
  Receipt Date: 20141224
  Transmission Date: 20150529
  Serious: Yes (Life-Threatening, Hospitalization, Other)
  Sender: FDA-Public Use
  Company Number: PHEH2013US025546

PATIENT
  Age: 56 Year
  Sex: Female
  Weight: 107 kg

DRUGS (11)
  1. ZANTAC [Concomitant]
     Active Substance: RANITIDINE HYDROCHLORIDE
  2. METFORMIN ER (METFORMIN HYDROCHLORIDE) [Concomitant]
  3. CODEINE [Concomitant]
     Active Substance: CODEINE
  4. CLOZAPINE (CLOZAPINE) [Suspect]
     Active Substance: CLOZAPINE
     Indication: ANXIETY
     Dosage: 300 MG, QHS
     Route: 048
     Dates: start: 1991
  5. CLOZARIL [Suspect]
     Active Substance: CLOZAPINE
  6. FISH OIL [Concomitant]
     Active Substance: FISH OIL
  7. CLOZAPINE (CLOZAPINE) [Suspect]
     Active Substance: CLOZAPINE
     Indication: PARANOIA
     Dosage: 300 MG, QHS
     Route: 048
     Dates: start: 1991
  8. CLOZAPINE (CLOZAPINE) [Suspect]
     Active Substance: CLOZAPINE
     Indication: DELUSION
     Dosage: 300 MG, QHS
     Route: 048
     Dates: start: 1991
  9. TYRENOL (ASTEMIZOLE) [Concomitant]
  10. CLOZAPINE (CLOZAPINE) [Suspect]
     Active Substance: CLOZAPINE
     Indication: HALLUCINATION
     Dosage: 300 MG, QHS
     Route: 048
     Dates: start: 1991
  11. ZOLOFT [Concomitant]
     Active Substance: SERTRALINE HYDROCHLORIDE

REACTIONS (3)
  - Agranulocytosis [None]
  - White blood cell count decreased [None]
  - Neutrophil count decreased [None]

NARRATIVE: CASE EVENT DATE: 20060608
